FAERS Safety Report 5548512-1 (Version None)
Quarter: 2007Q4

REPORT INFORMATION
  Report Type: 
  Country: None (occurrence: None)
  Receive Date: 20071211
  Receipt Date: 20070320
  Transmission Date: 20080405
  Serious: No
  Sender: FDA-Public Use
  Company Number: US-AMGEN-KDL212569

PATIENT
  Sex: Female
  Weight: 76.7 kg

DRUGS (5)
  1. ENBREL [Suspect]
     Indication: SYSTEMIC LUPUS ERYTHEMATOSUS
     Route: 058
     Dates: start: 20070201
  2. PREDNISONE [Concomitant]
  3. OMEGA 3 [Concomitant]
  4. ZINC [Concomitant]
  5. VITAMIN B-12 [Concomitant]

REACTIONS (7)
  - DERMATITIS [None]
  - DRY MOUTH [None]
  - EXCORIATION [None]
  - EXFOLIATIVE RASH [None]
  - OEDEMA PERIPHERAL [None]
  - RASH ERYTHEMATOUS [None]
  - SICCA SYNDROME [None]
